FAERS Safety Report 9522681 (Version 2)
Quarter: 2013Q3

REPORT INFORMATION
  Report Type: Spontaneous
  Country: US (occurrence: US)
  Receive Date: 20130913
  Receipt Date: 20130926
  Transmission Date: 20140515
  Serious: No
  Sender: FDA-Public Use
  Company Number: US-009507513-1309USA004359

PATIENT
  Age: 62 Year
  Sex: Female

DRUGS (4)
  1. PROVENTIL [Suspect]
     Indication: CHRONIC OBSTRUCTIVE PULMONARY DISEASE
     Dosage: 2 PUFFS, Q4H AS NEEDED
     Route: 055
  2. SYNTHROID [Concomitant]
     Dosage: UNKNOWN
  3. LEVOTHYROXINE SODIUM [Concomitant]
     Dosage: UNKNOWN
  4. PRAVASTATIN SODIUM [Concomitant]
     Dosage: UNKNOWN

REACTIONS (3)
  - Dyspnoea [Not Recovered/Not Resolved]
  - Product quality issue [Unknown]
  - Drug dose omission [Unknown]
